FAERS Safety Report 11999838 (Version 2)
Quarter: 2016Q1

REPORT INFORMATION
  Report Type: Spontaneous
  Country: GB (occurrence: GB)
  Receive Date: 20160204
  Receipt Date: 20160209
  Transmission Date: 20160526
  Serious: Yes (Life-Threatening, Other)
  Sender: FDA-Public Use
  Company Number: GB-AUROBINDO-AUR-APL-2016-00743

PATIENT
  Age: 58 Year
  Sex: Male
  Weight: 76 kg

DRUGS (10)
  1. OMEPRAZOLE. [Suspect]
     Active Substance: OMEPRAZOLE
     Indication: ABDOMINAL HERNIA
     Dosage: 1 DF, ONCE A DAY
     Route: 048
  2. CO-DYDRAMOL [Suspect]
     Active Substance: ACETAMINOPHEN\DIHYDROCODEINE
     Indication: PAIN
     Dosage: 8 DF, ONCE A DAY
     Route: 048
  3. SERTRALINE [Suspect]
     Active Substance: SERTRALINE HYDROCHLORIDE
     Route: 048
  4. AMITRIPTYLINE [Suspect]
     Active Substance: AMITRIPTYLINE
     Indication: PAIN
     Dosage: 25 MG, TWO TIMES A DAY
     Route: 048
  5. NAPROXEN. [Suspect]
     Active Substance: NAPROXEN
     Indication: PAIN
     Dosage: 4 DF, ONCE A DAY
     Route: 048
  6. NAPROXEN. [Suspect]
     Active Substance: NAPROXEN
     Route: 048
  7. SERTRALINE [Suspect]
     Active Substance: SERTRALINE HYDROCHLORIDE
     Indication: DEPRESSION
     Dosage: 1 DF, ONCE A DAY
     Route: 048
  8. AMITRIPTYLINE [Suspect]
     Active Substance: AMITRIPTYLINE
     Dosage: ONE IN THE MORNING AND ONE AT NIGHT
  9. OMEPRAZOLE. [Suspect]
     Active Substance: OMEPRAZOLE
     Route: 048
  10. LAXIDO [Suspect]
     Active Substance: POLYETHYLENE GLYCOL 3350\POTASSIUM CHLORIDE\SODIUM BICARBONATE\SODIUM CHLORIDE
     Indication: CONSTIPATION
     Dosage: 1 DF, ONCE A DAY
     Route: 048

REACTIONS (11)
  - Constipation [Unknown]
  - Abnormal behaviour [Unknown]
  - Irritability [Unknown]
  - Pain [Unknown]
  - Drug interaction [Unknown]
  - Confusional state [Unknown]
  - Balance disorder [Unknown]
  - Depressed mood [Unknown]
  - Dysuria [Unknown]
  - Emotional disorder [Unknown]
  - Memory impairment [Unknown]
